FAERS Safety Report 8555479-0 (Version None)
Quarter: 2012Q3

REPORT INFORMATION
  Report Type: 
  Country: None (occurrence: None)
  Receive Date: 20120731
  Receipt Date: 20110719
  Transmission Date: 20120928
  Serious: No
  Sender: FDA-Public Use
  Company Number: US-ASTRAZENECA-2011SE22325

PATIENT
  Age: 50 Year
  Sex: Female

DRUGS (4)
  1. KLONOPIN [Concomitant]
  2. SEROQUEL XR [Suspect]
     Route: 048
     Dates: end: 20110401
  3. SEROQUEL XR [Suspect]
     Indication: BIPOLAR DISORDER
     Route: 048
     Dates: start: 20110101
  4. STATIN [Suspect]
     Indication: HYPERCHOLESTEROLAEMIA
     Route: 065

REACTIONS (8)
  - MUSCLE SPASMS [None]
  - BLOOD CHOLESTEROL INCREASED [None]
  - PAIN IN EXTREMITY [None]
  - ARTHRITIS [None]
  - INFLUENZA LIKE ILLNESS [None]
  - MYALGIA [None]
  - WEIGHT INCREASED [None]
  - ALOPECIA [None]
